FAERS Safety Report 5421582-7 (Version None)
Quarter: 2007Q3

REPORT INFORMATION
  Report Type: 
  Country: None (occurrence: None)
  Receive Date: 20070821
  Receipt Date: 20070815
  Transmission Date: 20080115
  Serious: Yes (Other)
  Sender: FDA-Public Use
  Company Number: US-PFIZER INC-2007043181

PATIENT
  Sex: Female
  Weight: 83.9 kg

DRUGS (1)
  1. CELEBREX [Suspect]
     Indication: PAIN

REACTIONS (2)
  - CEREBROVASCULAR ACCIDENT [None]
  - MULTIPLE SCLEROSIS [None]
